FAERS Safety Report 5368637-3 (Version None)
Quarter: 2007Q2

REPORT INFORMATION
  Report Type: 
  Country: None (occurrence: None)
  Receive Date: 20070625
  Receipt Date: 20070620
  Transmission Date: 20071010
  Serious: Yes (Death)
  Sender: FDA-Public Use
  Company Number: US-ASTRAZENECA-2007UW14778

PATIENT
  Sex: Female

DRUGS (4)
  1. SEROQUEL [Suspect]
     Route: 048
  2. GEODON [Concomitant]
  3. LEXAPRO [Concomitant]
  4. LAMICTAL [Concomitant]

REACTIONS (1)
  - COMPLETED SUICIDE [None]
